FAERS Safety Report 8621298-X (Version None)
Quarter: 2012Q3

REPORT INFORMATION
  Report Type: 
  Country: None (occurrence: None)
  Receive Date: 20120824
  Receipt Date: 20120822
  Transmission Date: 20120928
  Serious: Yes (Hospitalization)
  Sender: FDA-Public Use
  Company Number: US-FRI-1000037849

PATIENT
  Sex: Female
  Weight: 81 kg

DRUGS (10)
  1. OMEPRAZOLE [Concomitant]
     Dosage: 20 MG
     Route: 048
  2. VENLAFAXINE [Concomitant]
     Dosage: 37.5 MG
     Route: 048
  3. CEFTAROLINE FOSAMIL [Suspect]
     Indication: CELLULITIS
     Dosage: 1200 MG
     Route: 042
     Dates: start: 20110801, end: 20110822
  4. LEVOXYL [Concomitant]
     Dosage: 112 MCG
     Route: 048
  5. ASPIRIN [Concomitant]
     Dosage: 81 MG
     Route: 048
  6. WARFARIN SODIUM [Suspect]
     Indication: DEEP VEIN THROMBOSIS
     Dosage: 2.5 MG
     Route: 048
     Dates: end: 20110822
  7. WARFARIN SODIUM [Suspect]
     Dosage: 2.5 MG
     Route: 048
     Dates: start: 20110825
  8. SIMVASTATIN [Concomitant]
     Dosage: 20 MG AT BEDTIME
     Route: 048
  9. ANASTROZOLE [Concomitant]
     Dosage: 1 MG
     Route: 048
  10. CARVEDILOL [Concomitant]
     Dosage: 25 MG
     Route: 048

REACTIONS (5)
  - HAEMARTHROSIS [None]
  - WHITE BLOOD CELL COUNT INCREASED [None]
  - HAEMOGLOBIN DECREASED [None]
  - DRUG INTERACTION [None]
  - INTERNATIONAL NORMALISED RATIO INCREASED [None]
